FAERS Safety Report 25491299 (Version 1)
Quarter: 2025Q2

REPORT INFORMATION
  Report Type: Spontaneous
  Country: JP (occurrence: JP)
  Receive Date: 20250629
  Receipt Date: 20250629
  Transmission Date: 20250716
  Serious: Yes (Death)
  Sender: MERCK SHARP & DOHME LLC
  Company Number: JP-009507513-2297963

PATIENT
  Sex: Female

DRUGS (2)
  1. KEYTRUDA [Suspect]
     Active Substance: PEMBROLIZUMAB
     Indication: Uterine cancer
     Route: 041
  2. LENVIMA [Concomitant]
     Active Substance: LENVATINIB

REACTIONS (2)
  - Malignant neoplasm progression [Fatal]
  - Type 1 diabetes mellitus [Fatal]
